FAERS Safety Report 4518649-4 (Version None)
Quarter: 2004Q4

REPORT INFORMATION
  Report Type: 
  Country: None (occurrence: None)
  Receive Date: 20041029
  Receipt Date: 20040823
  Transmission Date: 20050328
  Serious: No
  Sender: FDA-Public Use
  Company Number: 200416351US

PATIENT
  Age: 63 Year
  Sex: Female

DRUGS (9)
  1. KETEK [Suspect]
     Indication: SINUSITIS
     Dosage: 800 MG QD
     Dates: start: 20040816
  2. ALLEGRA [Suspect]
     Indication: SINUSITIS
     Dosage: 180 MG QD
  3. BENAZAPRIL HYDROCHLORIDE (LOTENSIN) [Concomitant]
  4. METOPROLOL SUCCINATE (TOPROL XL) [Concomitant]
  5. BEXTRA [Concomitant]
  6. SYNTHROID [Concomitant]
  7. LASIX [Concomitant]
  8. AMBIEN [Concomitant]
  9. CHLORDIAZEPOZIDE HYDROCHLORIDE (LIBRIUM TABS) [Concomitant]

REACTIONS (5)
  - ANOSMIA [None]
  - DIZZINESS [None]
  - GASTROOESOPHAGEAL REFLUX DISEASE [None]
  - INSOMNIA [None]
  - PSYCHOMOTOR HYPERACTIVITY [None]
